FAERS Safety Report 10227883 (Version 1)
Quarter: 2014Q2

REPORT INFORMATION
  Report Type: Spontaneous
  Country: US (occurrence: None)
  Receive Date: 20140609
  Receipt Date: 20140609
  Transmission Date: 20141212
  Serious: Yes (Death, Hospitalization)
  Sender: FDA-Public Use
  Company Number: None

PATIENT
  Age: 58 Year
  Sex: Male
  Weight: 99.5 kg

DRUGS (4)
  1. PEGASYS [Suspect]
     Indication: CHRONIC HEPATITIS C
     Dates: start: 20140228, end: 20140515
  2. RIBAVIRIN [Suspect]
     Indication: CHRONIC HEPATITIS C
     Route: 048
     Dates: start: 20140228, end: 20140515
  3. LOSARTAN [Concomitant]
  4. METFORMIN [Concomitant]

REACTIONS (25)
  - Nausea [None]
  - Abdominal pain [None]
  - Diarrhoea [None]
  - Hypotension [None]
  - Sepsis [None]
  - Staphylococcal bacteraemia [None]
  - Thrombocytopenia [None]
  - Acute myocardial infarction [None]
  - Acute respiratory failure [None]
  - Mental status changes [None]
  - Splenomegaly [None]
  - Hepatic cirrhosis [None]
  - Septic embolus [None]
  - Cerebral artery embolism [None]
  - Endocarditis [None]
  - Renal failure acute [None]
  - Hypernatraemia [None]
  - Dehydration [None]
  - Acute respiratory distress syndrome [None]
  - Pulmonary oedema [None]
  - Atrial fibrillation [None]
  - Fluid overload [None]
  - Renal tubular necrosis [None]
  - Dialysis [None]
  - Acidosis [None]
